FAERS Safety Report 8202199-8 (Version None)
Quarter: 2012Q1

REPORT INFORMATION
  Report Type: 
  Country: None (occurrence: None)
  Receive Date: 20120312
  Receipt Date: 20120305
  Transmission Date: 20120608
  Serious: Yes (Hospitalization)
  Sender: FDA-Public Use
  Company Number: US-VERTEX PHARMACEUTICALS INC.-AE-2012-003178

PATIENT
  Sex: Female

DRUGS (7)
  1. CELEXA [Concomitant]
     Indication: ANTIDEPRESSANT THERAPY
  2. DIOVAN [Concomitant]
     Indication: BLOOD PRESSURE
  3. INCIVEK [Suspect]
     Indication: HEPATITIS C
     Route: 048
     Dates: start: 20110801, end: 20110815
  4. RIBAVIRIN [Concomitant]
     Indication: HEPATITIS C
     Route: 048
     Dates: start: 20110801, end: 20110815
  5. PEGASYS [Concomitant]
     Indication: HEPATITIS C
     Route: 058
     Dates: start: 20110801, end: 20110811
  6. FELODIPINE [Concomitant]
     Indication: BLOOD PRESSURE
  7. NEXIUM [Concomitant]

REACTIONS (7)
  - PNEUMONIA PRIMARY ATYPICAL [None]
  - BRONCHITIS [None]
  - ANAEMIA [None]
  - BLOOD URIC ACID INCREASED [None]
  - CHEST PAIN [None]
  - DYSPNOEA [None]
  - MALAISE [None]
